FAERS Safety Report 16764876 (Version 3)
Quarter: 2025Q2

REPORT INFORMATION
  Report Type: Spontaneous
  Country: US (occurrence: US)
  Receive Date: 20190903
  Receipt Date: 20250426
  Transmission Date: 20250717
  Serious: Yes (Hospitalization, Other)
  Sender: AUROBINDO
  Company Number: US-AUROBINDO-AUR-APL-2019-055891

PATIENT
  Age: 15 Year
  Sex: Female

DRUGS (15)
  1. SERTRALINE HYDROCHLORIDE [Suspect]
     Active Substance: SERTRALINE HYDROCHLORIDE
     Indication: Major depression
     Route: 048
  2. OLANZAPINE [Suspect]
     Active Substance: OLANZAPINE
     Indication: Major depression
  3. ESCITALOPRAM [Suspect]
     Active Substance: ESCITALOPRAM OXALATE
     Indication: Major depression
     Dosage: 20 MILLIGRAM, ONCE A DAY
  4. VENLAFAXINE [Suspect]
     Active Substance: VENLAFAXINE HYDROCHLORIDE
     Indication: Major depression
  5. ARIPIPRAZOLE [Suspect]
     Active Substance: ARIPIPRAZOLE
     Indication: Major depression
  6. ZIPRASIDONE HYDROCHLORIDE [Suspect]
     Active Substance: ZIPRASIDONE HYDROCHLORIDE
     Indication: Major depression
  7. KETAMINE HYDROCHLORIDE [Suspect]
     Active Substance: KETAMINE HYDROCHLORIDE
     Indication: Major depression
  8. CHLORPROMAZINE HYDROCHLORIDE [Suspect]
     Active Substance: CHLORPROMAZINE HYDROCHLORIDE
     Indication: Major depression
  9. CLONAZEPAM [Suspect]
     Active Substance: CLONAZEPAM
     Indication: Generalised anxiety disorder
  10. CLONAZEPAM [Suspect]
     Active Substance: CLONAZEPAM
     Indication: Post-traumatic stress disorder
  11. LORAZEPAM [Suspect]
     Active Substance: LORAZEPAM
     Indication: Post-traumatic stress disorder
  12. LORAZEPAM [Suspect]
     Active Substance: LORAZEPAM
     Indication: Generalised anxiety disorder
  13. FLUVOXAMINE [Suspect]
     Active Substance: FLUVOXAMINE
     Indication: Major depression
  14. IMIPRAMINE [Suspect]
     Active Substance: IMIPRAMINE
     Indication: Major depression
  15. PRAZOSIN [Suspect]
     Active Substance: PRAZOSIN
     Indication: Nightmare

REACTIONS (14)
  - Mydriasis [Unknown]
  - Dysdiadochokinesis [Unknown]
  - Delirium [Unknown]
  - Clonus [Unknown]
  - Mental disorder [Unknown]
  - Tremor [Unknown]
  - Confusional state [Unknown]
  - Electrocardiogram QT prolonged [Unknown]
  - Prescription drug used without a prescription [Unknown]
  - Intentional overdose [Unknown]
  - Nausea [Recovering/Resolving]
  - Derealisation [Recovering/Resolving]
  - Drug ineffective [Unknown]
  - Toxicity to various agents [Unknown]
